FAERS Safety Report 7828501-4 (Version None)
Quarter: 2011Q4

REPORT INFORMATION
  Report Type: 
  Country: None (occurrence: None)
  Receive Date: 20111020
  Receipt Date: 20111017
  Transmission Date: 20120403
  Serious: Yes (Hospitalization)
  Sender: FDA-Public Use
  Company Number: BR-ABBOTT-09P-020-0603319-00

PATIENT
  Sex: Female
  Weight: 55 kg

DRUGS (6)
  1. HUMIRA [Suspect]
     Indication: RHEUMATOID ARTHRITIS
     Route: 058
     Dates: start: 20081023, end: 20081207
  2. DIPROSPAN [Concomitant]
     Indication: PAIN
     Dosage: WHEN HAS STRONG PAIN
     Dates: start: 20090101
  3. ARAVA [Concomitant]
     Indication: RHEUMATOID ARTHRITIS
     Route: 048
  4. RERUQUINOL [Concomitant]
     Indication: PRODUCT USED FOR UNKNOWN INDICATION
     Dates: start: 20110901
  5. METHOTREXATE [Concomitant]
     Indication: PRODUCT USED FOR UNKNOWN INDICATION
     Dosage: 4 TABLETS PER WEEK
  6. DEFKAZZACORT/NEKIXUCAN [Concomitant]
     Indication: PAIN
     Dosage: 7.5MG/7.5MG

REACTIONS (7)
  - ANAEMIA [None]
  - INJECTION SITE PAIN [None]
  - SINUSITIS [None]
  - RASH ERYTHEMATOUS [None]
  - ALOPECIA [None]
  - EPISTAXIS [None]
  - INJECTION SITE ERYTHEMA [None]
